FAERS Safety Report 19276273 (Version 2)
Quarter: 2021Q2

REPORT INFORMATION
  Report Type: Spontaneous
  Country: JP (occurrence: JP)
  Receive Date: 20210520
  Receipt Date: 20210617
  Transmission Date: 20210717
  Serious: Yes (Other)
  Sender: FDA-Public Use
  Company Number: JP-ASTRAZENECA-2021A430185

PATIENT
  Age: 72 Year
  Sex: Male
  Weight: 62 kg

DRUGS (10)
  1. TRAMAL [Concomitant]
     Active Substance: TRAMADOL
     Dosage: DOSE UNKNOWN
     Route: 048
  2. VANCOMYCIN HYDROCHLORIDE. [Concomitant]
     Active Substance: VANCOMYCIN HYDROCHLORIDE
     Indication: ENTERITIS INFECTIOUS
  3. NAFAMOSTAT [Suspect]
     Active Substance: NAFAMOSTAT
     Route: 041
     Dates: start: 20210401, end: 20210414
  4. POLAPREZINC [Concomitant]
     Active Substance: POLAPREZINC
     Dosage: DOSE UNKNOWN
     Route: 048
  5. LANTHANUM CARBONATE OD [Concomitant]
     Active Substance: LANTHANUM CARBONATE
     Indication: HYPERPHOSPHATAEMIA
  6. CILOSTAZOL. [Concomitant]
     Active Substance: CILOSTAZOL
     Dosage: DOSE UNKNOWN
     Route: 048
  7. LUNESTA [Concomitant]
     Active Substance: ESZOPICLONE
     Dosage: DOSE UNKNOWN
     Route: 048
  8. NEXIUM [Suspect]
     Active Substance: ESOMEPRAZOLE MAGNESIUM
     Dosage: 20.0MG UNKNOWN
     Route: 048
     Dates: start: 20210331, end: 20210414
  9. HUMAN BLOOD PREPARATIONS [Concomitant]
     Indication: NEPHROGENIC ANAEMIA
     Dosage: DOSE UNKNOWN
     Route: 065
  10. HERBAL NOS [Concomitant]
     Active Substance: HERBALS
     Indication: DECREASED APPETITE

REACTIONS (2)
  - Off label use [Unknown]
  - Haemolytic anaemia [Recovering/Resolving]

NARRATIVE: CASE EVENT DATE: 20210405
